FAERS Safety Report 4347889-2 (Version None)
Quarter: 2004Q2

REPORT INFORMATION
  Report Type: 
  Country: None (occurrence: None)
  Receive Date: 20040422
  Receipt Date: 20040413
  Transmission Date: 20050107
  Serious: Yes (Hospitalization)
  Sender: FDA-Public Use
  Company Number: HQWYE455914APR04

PATIENT
  Age: 12 Month
  Sex: Male

DRUGS (1)
  1. EFFEXOR XR [Suspect]
     Dosage: APPROXIMATELY 20 EFFEXOR XR 75 MG CAPSULES (OVERDOSE AMOUNT 1500 MG), ORAL
     Route: 048
     Dates: start: 20040412, end: 20040412

REACTIONS (4)
  - ACCIDENTAL OVERDOSE [None]
  - CHROMATURIA [None]
  - CONVULSION [None]
  - HEART RATE INCREASED [None]
